FAERS Safety Report 7063800-8 (Version None)
Quarter: 2010Q4

REPORT INFORMATION
  Report Type: 
  Country: None (occurrence: None)
  Receive Date: 20101026
  Receipt Date: 20100831
  Transmission Date: 20110411
  Serious: No
  Sender: FDA-Public Use
  Company Number: US-ABBOTT-10P-163-0667065-00

PATIENT
  Sex: Female

DRUGS (2)
  1. LUPRON [Suspect]
     Indication: PRODUCT USED FOR UNKNOWN INDICATION
  2. LYBREL [Concomitant]
     Indication: CONTRACEPTION

REACTIONS (6)
  - CRYING [None]
  - DRUG INEFFECTIVE [None]
  - FEELING COLD [None]
  - HOT FLUSH [None]
  - MENOPAUSE [None]
  - MOOD ALTERED [None]
